FAERS Safety Report 6417968-4 (Version None)
Quarter: 2009Q4

REPORT INFORMATION
  Report Type: 
  Country: None (occurrence: None)
  Receive Date: 20091028
  Receipt Date: 20091023
  Transmission Date: 20100525
  Serious: Yes (Life-Threatening)
  Sender: FDA-Public Use
  Company Number: US-MERCK-0910USA03093

PATIENT
  Sex: Female

DRUGS (3)
  1. ISENTRESS [Suspect]
     Indication: HIV INFECTION
     Route: 048
  2. FTC [Concomitant]
     Route: 065
  3. SUSTIVA [Concomitant]
     Route: 065

REACTIONS (2)
  - NEPHROPATHY TOXIC [None]
  - RENAL FAILURE [None]
